FAERS Safety Report 20729920 (Version 1)
Quarter: 2022Q2

REPORT INFORMATION
  Report Type: Spontaneous
  Country: PT (occurrence: PT)
  Receive Date: 20220420
  Receipt Date: 20220420
  Transmission Date: 20220721
  Serious: Yes (Other)
  Sender: FDA-Public Use
  Company Number: None

PATIENT
  Age: 50 Year
  Sex: Female
  Weight: 71 kg

DRUGS (4)
  1. AZITHROMYCIN DIHYDRATE [Suspect]
     Active Substance: AZITHROMYCIN DIHYDRATE
     Indication: Rhinitis
     Dosage: UNK (1X AO DIA DURANTE 3 DIAS)
     Route: 048
     Dates: start: 20220226, end: 20220301
  2. SERTRALINE HYDROCHLORIDE [Suspect]
     Active Substance: SERTRALINE HYDROCHLORIDE
     Indication: Depression
     Dosage: 50 MG, QD (SERTRALINA:1/2 NA PRIMEIRA SEMANA E 1 AO FIM DA 2? SEMANA AUMENTOU PARA 1 INTEIRO. CONCOM
     Route: 048
     Dates: start: 20220224, end: 20220303
  3. SERTRALINE HYDROCHLORIDE [Suspect]
     Active Substance: SERTRALINE HYDROCHLORIDE
     Dosage: 100 MG, QD (SERTRALINA:1/2 NA PRIMEIRA SEMANA E 1 AO FIM DA 2? SEMANA AUMENTOU PARA 1 INTEIRO) (FORM
     Route: 048
     Dates: start: 20220304, end: 20220307
  4. QUETIAPINE [Concomitant]
     Active Substance: QUETIAPINE
     Indication: Product used for unknown indication
     Dosage: 25 MG, QD (1 COMPRIMDIO POR DIA, AO DEITAR) (FORMULATION: COMPRIMIDO REVESTIDO POR PEL?CULA)
     Route: 048
     Dates: start: 20220223

REACTIONS (2)
  - Eye injury [Unknown]
  - Oral disorder [Unknown]

NARRATIVE: CASE EVENT DATE: 20220302
